FAERS Safety Report 25413101 (Version 1)
Quarter: 2025Q2

REPORT INFORMATION
  Report Type: Spontaneous
  Country: FR (occurrence: FR)
  Receive Date: 20250609
  Receipt Date: 20250609
  Transmission Date: 20250717
  Serious: Yes (Hospitalization, Other)
  Sender: GUERBET
  Company Number: FR-GUERBETG-FR-20250256

PATIENT
  Age: 56 Year
  Sex: Female

DRUGS (1)
  1. OPTIRAY 350 [Suspect]
     Active Substance: IOVERSOL
     Indication: Computerised tomogram
     Route: 042
     Dates: start: 20250319, end: 20250319

REACTIONS (3)
  - Hypotension [Recovered/Resolved]
  - Oedema [Recovered/Resolved]
  - Respiratory distress [Recovered/Resolved]

NARRATIVE: CASE EVENT DATE: 20250319
